FAERS Safety Report 17037893 (Version 2)
Quarter: 2019Q4

REPORT INFORMATION
  Report Type: Spontaneous
  Country: US (occurrence: US)
  Receive Date: 20191115
  Receipt Date: 20191125
  Transmission Date: 20200122
  Serious: Yes (Other)
  Sender: FDA-Public Use
  Company Number: US-HORIZON-DUE-0623-2019

PATIENT
  Age: 72 Year
  Sex: Female

DRUGS (3)
  1. HYDROCHLOROTHIAZIDE. [Concomitant]
     Active Substance: HYDROCHLOROTHIAZIDE
  2. NEXIUM [Concomitant]
     Active Substance: ESOMEPRAZOLE MAGNESIUM
  3. DUEXIS [Suspect]
     Active Substance: FAMOTIDINE\IBUPROFEN
     Indication: TENDON DISORDER
     Dosage: TWICE A DAY AS NEEDED
     Dates: start: 201802

REACTIONS (9)
  - Limb deformity [Unknown]
  - Radiotherapy [Recovered/Resolved]
  - Off label use [Unknown]
  - Brain tumour operation [Recovered/Resolved]
  - Lung cancer metastatic [Recovered/Resolved]
  - Rheumatoid arthritis [Unknown]
  - Off label use [Unknown]
  - Lung carcinoma cell type unspecified recurrent [Recovered/Resolved]
  - Rheumatoid arthritis [Recovered/Resolved]

NARRATIVE: CASE EVENT DATE: 2018
